FAERS Safety Report 8880266 (Version 1)
Quarter: 2012Q4

REPORT INFORMATION
  Report Type: 
  Country: DE (occurrence: DE)
  Receive Date: 20121031
  Receipt Date: 20121031
  Transmission Date: 20130627
  Serious: Yes (Hospitalization)
  Sender: FDA-Public Use
  Company Number: DE-009507513-1210DEU010144

PATIENT
  Age: 73 Year
  Sex: Male

DRUGS (2)
  1. LOSARTAN POTASSIUM [Suspect]
     Indication: HYPERTENSION
     Dosage: 0.5 tablet, qd
     Route: 048
     Dates: start: 2005
  2. LOSARTAN POTASSIUM [Suspect]
     Dosage: 0.5 tablet, qd
     Route: 048

REACTIONS (2)
  - Visual impairment [Not Recovered/Not Resolved]
  - Abdominal pain upper [Not Recovered/Not Resolved]
